FAERS Safety Report 9188834 (Version 3)
Quarter: 2014Q1

REPORT INFORMATION
  Report Type: Spontaneous
  Country: US (occurrence: US)
  Receive Date: 20130326
  Receipt Date: 20140327
  Transmission Date: 20141002
  Serious: Yes (Other)
  Sender: FDA-Public Use
  Company Number: US-PFIZER INC-2013095114

PATIENT
  Age: 56 Year
  Sex: Male
  Weight: 117 kg

DRUGS (19)
  1. NEURONTIN [Suspect]
     Dosage: UNK
  2. COLACE [Concomitant]
     Dosage: 100 MG, 3X/DAY
  3. ELAVIL [Concomitant]
     Dosage: 50 MG, 3X/DAY
  4. FENTANYL [Concomitant]
     Dosage: UNK
  5. FLEXERIL [Concomitant]
     Dosage: 10 MG, 1X/DAY
  6. LIDOCAINE [Concomitant]
     Dosage: UNK
  7. LIDODERM [Concomitant]
     Indication: PAIN
     Dosage: UNK
  8. LYRICA [Concomitant]
     Dosage: 200 MG, 3X/DAY
  9. MOBIC [Concomitant]
     Dosage: 7.5 MG, 2X/DAY
  10. TRAMADOL [Concomitant]
     Dosage: UNK
  11. ULTRAM [Concomitant]
     Dosage: 100 MG, 4X/DAY
  12. LIPITOR [Concomitant]
     Dosage: 20 MG, 1X/DAY
  13. ALPRAZOLAM [Concomitant]
     Dosage: 0.25 MG, (1 IN AM- 2 IN PM)
  14. NORVASC [Concomitant]
     Dosage: 5 MG, 1X/DAY
  15. LISINOPRIL [Concomitant]
     Dosage: 10 MG, 1X/DAY
  16. EXLAX [Concomitant]
     Dosage: 50 MG, 1X/DAY
  17. CIMETIDINE [Concomitant]
     Dosage: 200 MG, 2X/DAY
  18. DURAGESIC [Concomitant]
     Dosage: 50 MG, EVERY 72 HOURS
  19. COMPAZINE [Concomitant]
     Indication: NAUSEA
     Dosage: 10 MG, AS NEEDED

REACTIONS (1)
  - Complex regional pain syndrome [Unknown]
